FAERS Safety Report 6537710-6 (Version None)
Quarter: 2010Q1

REPORT INFORMATION
  Report Type: 
  Country: None (occurrence: None)
  Receive Date: 20100114
  Receipt Date: 20100107
  Transmission Date: 20100710
  Serious: Yes (Death, Life-Threatening, Hospitalization)
  Sender: FDA-Public Use
  Company Number: CN-JNJFOC-20090707740

PATIENT
  Sex: Male
  Weight: 69 kg

DRUGS (1)
  1. INFLIXIMAB, RECOMBINANT [Suspect]
     Indication: PSORIASIS
     Route: 042
     Dates: start: 20090511, end: 20090720

REACTIONS (7)
  - ACUTE RESPIRATORY DISTRESS SYNDROME [None]
  - DEEP VEIN THROMBOSIS [None]
  - LIVER DISORDER [None]
  - METASTASES TO LIVER [None]
  - METASTASES TO SPLEEN [None]
  - PANCREATIC CARCINOMA [None]
  - PULMONARY EMBOLISM [None]
